FAERS Safety Report 25333508 (Version 1)
Quarter: 2025Q2

REPORT INFORMATION
  Report Type: Spontaneous
  Country: JP (occurrence: JP)
  Receive Date: 20250520
  Receipt Date: 20250520
  Transmission Date: 20250716
  Serious: Yes (Other)
  Sender: BOEHRINGER INGELHEIM
  Company Number: JP-NBI-2025-BI-071590

PATIENT
  Age: 94 Year
  Sex: Female

DRUGS (1)
  1. JARDIANCE [Suspect]
     Active Substance: EMPAGLIFLOZIN
     Indication: Chronic kidney disease

REACTIONS (2)
  - Blood pressure decreased [Recovered/Resolved]
  - Bladder cancer [Unknown]

NARRATIVE: CASE EVENT DATE: 20250517
